FAERS Safety Report 14126247 (Version 4)
Quarter: 2018Q1

REPORT INFORMATION
  Report Type: Report from Study
  Country: LT (occurrence: LT)
  Receive Date: 20171025
  Receipt Date: 20180205
  Transmission Date: 20180508
  Serious: Yes (Hospitalization, Other)
  Sender: FDA-Public Use
  Company Number: LT-B.I. PHARMACEUTICALS,INC./RIDGEFIELD-2017-BI-056652

PATIENT
  Age: 47 Year
  Sex: Male
  Weight: 92 kg

DRUGS (1)
  1. VARGATEF [Suspect]
     Active Substance: NINTEDANIB
     Indication: NON-SMALL CELL LUNG CANCER
     Route: 048
     Dates: start: 20171004

REACTIONS (2)
  - Febrile neutropenia [Recovered/Resolved]
  - Febrile neutropenia [Recovered/Resolved]

NARRATIVE: CASE EVENT DATE: 20171010
